FAERS Safety Report 4899072-X (Version None)
Quarter: 2006Q1

REPORT INFORMATION
  Report Type: 
  Country: None (occurrence: None)
  Receive Date: 20060106
  Receipt Date: 20051019
  Transmission Date: 20060701
  Serious: No
  Sender: FDA-Public Use
  Company Number: 200512256BWH

PATIENT
  Sex: Male

DRUGS (14)
  1. LEVITRA [Suspect]
     Dosage: 20 MG, TOTAL DAILY, ORAL
     Route: 048
  2. PRAVACHOL [Concomitant]
  3. NORVASC [Concomitant]
  4. COREG [Concomitant]
  5. LASIX [Concomitant]
  6. ACCUPRIL [Concomitant]
  7. TRICOR [Concomitant]
  8. PLAVIX [Concomitant]
  9. KLOR-CON [Concomitant]
  10. GLUCOPHAGE [Concomitant]
  11. AMARYL [Concomitant]
  12. FOLGARD [Concomitant]
  13. TRAZODONE [Concomitant]
  14. ZETIA [Concomitant]

REACTIONS (1)
  - DRUG EFFECT DECREASED [None]
